FAERS Safety Report 23028655 (Version 2)
Quarter: 2023Q4

REPORT INFORMATION
  Report Type: Spontaneous
  Country: GB (occurrence: GB)
  Receive Date: 20231004
  Receipt Date: 20231005
  Transmission Date: 20240110
  Serious: Yes (Other)
  Sender: FDA-Public Use
  Company Number: None

PATIENT
  Age: 28 Year
  Sex: Female
  Weight: 76 kg

DRUGS (4)
  1. PENICILLAMINE [Suspect]
     Active Substance: PENICILLAMINE
     Indication: Product used for unknown indication
     Dosage: 125 MILLIGRAM
     Route: 065
  2. ACETIC ACID [Concomitant]
     Active Substance: ACETIC ACID
     Dosage: 1 DOSAGE FORM, TID
     Route: 065
     Dates: start: 20230911
  3. OLIVE OIL [Concomitant]
     Active Substance: OLIVE OIL
     Indication: Cerumen impaction
     Dosage: 1 DOSAGE FORM, BID (FOR IMPACTED EAR WAX)
     Route: 065
     Dates: start: 20230911
  4. OTOMIZE [Concomitant]
     Dosage: 1 DOSAGE FORM, TID
     Route: 065
     Dates: start: 20230913

REACTIONS (1)
  - Angioedema [Unknown]
